FAERS Safety Report 4492805-6 (Version None)
Quarter: 2004Q4

REPORT INFORMATION
  Report Type: 
  Country: None (occurrence: None)
  Receive Date: 20041029
  Receipt Date: 20041013
  Transmission Date: 20050328
  Serious: Yes (Hospitalization)
  Sender: FDA-Public Use
  Company Number: DSA_24643_2004

PATIENT
  Age: 47 Year
  Sex: Female

DRUGS (2)
  1. TEVETEN [Suspect]
     Indication: HYPERTENSION
     Dosage: 600 MG Q DAY PO
     Route: 048
     Dates: start: 19990805
  2. BELOC ZOK [Concomitant]

REACTIONS (9)
  - ANXIETY [None]
  - ASTHENIA [None]
  - BLOOD PRESSURE SYSTOLIC INCREASED [None]
  - CARDIAC VENTRICULAR DISORDER [None]
  - DIZZINESS [None]
  - DYSPNOEA [None]
  - HYPERTENSIVE CRISIS [None]
  - HYPOAESTHESIA [None]
  - TRICUSPID VALVE INCOMPETENCE [None]
